FAERS Safety Report 4374210-6 (Version None)
Quarter: 2004Q2

REPORT INFORMATION
  Report Type: 
  Country: None (occurrence: None)
  Receive Date: 20040603
  Receipt Date: 20040526
  Transmission Date: 20050107
  Serious: Yes (Hospitalization)
  Sender: FDA-Public Use
  Company Number: 2004-05-2091

PATIENT
  Age: 40 Year
  Sex: Male

DRUGS (2)
  1. AERIUS (DESLORATADINE) TABLETS 'LIKE CLARINEX' [Suspect]
     Indication: HYPERSENSITIVITY
     Dosage: 1 TAB ORAL
     Route: 048
     Dates: start: 20040313, end: 20040317
  2. OFTAN C-C [Concomitant]

REACTIONS (2)
  - BLOOD BILIRUBIN INCREASED [None]
  - CHEST WALL PAIN [None]
